FAERS Safety Report 8763204 (Version 1)
Quarter: 2012Q4

REPORT INFORMATION
  Report Type: 
  Country: GB (occurrence: GB)
  Receive Date: 20120831
  Receipt Date: 20120831
  Transmission Date: 20130627
  Serious: No
  Sender: FDA-Public Use
  Company Number: GB-JNJFOC-20120811066

PATIENT
  Sex: Female

DRUGS (1)
  1. DUROGESIC DTRANS [Suspect]
     Indication: PRODUCT USED FOR UNKNOWN INDICATION
     Dosage: 2 x 50 ug/hr and 1 x 100 ug/hr
     Route: 062

REACTIONS (1)
  - Wrong technique in drug usage process [Unknown]
